FAERS Safety Report 24427008 (Version 2)
Quarter: 2024Q4

REPORT INFORMATION
  Report Type: Spontaneous
  Country: US (occurrence: US)
  Receive Date: 20241011
  Receipt Date: 20241019
  Transmission Date: 20250114
  Serious: Yes (Death, Life-Threatening, Hospitalization, Other)
  Sender: AUROBINDO
  Company Number: US-MLMSERVICE-20240923-PI201692-00117-1

PATIENT
  Age: 73 Year
  Sex: Male

DRUGS (2)
  1. DEXAMETHASONE [Suspect]
     Active Substance: DEXAMETHASONE
     Indication: Meningitis pneumococcal
     Dosage: UNK
     Route: 065
  2. ACYCLOVIR [Suspect]
     Active Substance: ACYCLOVIR
     Indication: Herpes simplex
     Dosage: UNK
     Route: 065

REACTIONS (10)
  - Disseminated herpes simplex [Fatal]
  - Acute hepatic failure [Fatal]
  - Acute respiratory failure [Unknown]
  - Encephalopathy [Unknown]
  - Acute kidney injury [Unknown]
  - Shock [Unknown]
  - Pancytopenia [Unknown]
  - Anaemia [Unknown]
  - Coagulopathy [Unknown]
  - Drug ineffective [Unknown]
